FAERS Safety Report 6302078-7 (Version None)
Quarter: 2009Q3

REPORT INFORMATION
  Report Type: 
  Country: None (occurrence: None)
  Receive Date: 20090807
  Receipt Date: 20090731
  Transmission Date: 20100115
  Serious: Yes (Hospitalization)
  Sender: FDA-Public Use
  Company Number: TR-ELI_LILLY_AND_COMPANY-TR200908000026

PATIENT
  Sex: Male

DRUGS (5)
  1. HUMALOG [Suspect]
     Indication: DIABETES MELLITUS
     Dosage: 6 IU, 3/D
     Route: 058
  2. MONOKET [Concomitant]
     Indication: HYPERTENSION
     Dosage: UNK UNK, DAILY (1/D)
     Route: 048
     Dates: start: 20030101, end: 20090731
  3. TRENTAL [Concomitant]
     Dosage: 400 MG, 3/D
     Route: 048
     Dates: start: 20090731
  4. DELIX PLUS [Concomitant]
     Indication: CARDIAC DISORDER
     Dosage: 2.5 MG, UNK
     Route: 048
     Dates: start: 20040101
  5. LANTUS [Concomitant]
     Indication: DIABETES MELLITUS
     Dosage: 10 IU, UNK
     Route: 058

REACTIONS (2)
  - CONTUSION [None]
  - HOSPITALISATION [None]
